APPROVED DRUG PRODUCT: MAGNESIUM SULFATE IN DEXTROSE 5% IN PLASTIC CONTAINER
Active Ingredient: MAGNESIUM SULFATE
Strength: 1GM/100ML
Dosage Form/Route: INJECTABLE;INJECTION
Application: N020488 | Product #001 | TE Code: AP
Applicant: HOSPIRA INC
Approved: Jul 11, 1995 | RLD: Yes | RS: Yes | Type: RX